FAERS Safety Report 6193545-8 (Version None)
Quarter: 2009Q2

REPORT INFORMATION
  Report Type: 
  Country: None (occurrence: None)
  Receive Date: 20090512
  Receipt Date: 20090504
  Transmission Date: 20091009
  Serious: Yes (Other)
  Sender: FDA-Public Use
  Company Number: CHPA2009US10982

PATIENT
  Sex: Male
  Weight: 68 kg

DRUGS (2)
  1. VOLTAREN [Suspect]
     Indication: INTENTIONAL DRUG MISUSE
     Dosage: TOPICAL
     Route: 061
  2. VOLTAREN [Suspect]
     Indication: MUSCULOSKELETAL PAIN
     Dosage: TOPICAL
     Route: 061

REACTIONS (5)
  - DRUG ADMINISTERED AT INAPPROPRIATE SITE [None]
  - INTENTIONAL DRUG MISUSE [None]
  - OPEN WOUND [None]
  - PENILE PAIN [None]
  - PENILE ULCERATION [None]
